FAERS Safety Report 5469259-6 (Version None)
Quarter: 2007Q3

REPORT INFORMATION
  Report Type: 
  Country: None (occurrence: None)
  Receive Date: 20070924
  Receipt Date: 20070906
  Transmission Date: 20080115
  Serious: Yes (Congenital Anomaly)
  Sender: FDA-Public Use
  Company Number: 100#08#2007-03470

PATIENT

DRUGS (2)
  1. SERTRALINE HCL [Suspect]
     Indication: DRUG EXPOSURE DURING PREGNANCY
     Dosage: 50 MG (DAILY) TRANSPLACENTAL,
     Route: 064
  2. LORAZEPAM [Suspect]
     Indication: DRUG EXPOSURE DURING PREGNANCY
     Dosage: 1 MG TRANSPLACENTAL
     Route: 064

REACTIONS (2)
  - CLEFT LIP AND PALATE [None]
  - DRUG EXPOSURE DURING PREGNANCY [None]
